FAERS Safety Report 12480791 (Version 1)
Quarter: 2016Q2

REPORT INFORMATION
  Report Type: Spontaneous
  Country: JP (occurrence: JP)
  Receive Date: 20160620
  Receipt Date: 20160620
  Transmission Date: 20160815
  Serious: Yes (Other)
  Sender: FDA-Public Use
  Company Number: JP-PFIZER INC-2016301971

PATIENT
  Weight: 39.2 kg

DRUGS (2)
  1. FOSPHENYTOIN SODIUM. [Suspect]
     Active Substance: FOSPHENYTOIN SODIUM
     Indication: STATUS EPILEPTICUS
     Dosage: 250 MG, 1X/DAY
     Route: 042
     Dates: start: 20160516, end: 20160531
  2. FOSPHENYTOIN SODIUM. [Suspect]
     Active Substance: FOSPHENYTOIN SODIUM
     Dosage: 100 MG, 1X/DAY
     Route: 042
     Dates: start: 20160608, end: 20160611

REACTIONS (3)
  - Seizure [Unknown]
  - Body temperature increased [Unknown]
  - Chills [Unknown]

NARRATIVE: CASE EVENT DATE: 20160611
